FAERS Safety Report 17732770 (Version 3)
Quarter: 2021Q1

REPORT INFORMATION
  Report Type: Spontaneous
  Country: JP (occurrence: JP)
  Receive Date: 20200501
  Receipt Date: 20210322
  Transmission Date: 20210419
  Serious: Yes (Hospitalization, Other)
  Sender: FDA-Public Use
  Company Number: NVSJ2020JP004750

PATIENT
  Age: 60 Year
  Sex: Female

DRUGS (2)
  1. REZALTAS [Suspect]
     Active Substance: AZELNIDIPINE\OLMESARTAN MEDOXOMIL
     Indication: HYPERTENSION
     Dosage: UNK
     Route: 048
     Dates: start: 201909
  2. VOTRIENT [Suspect]
     Active Substance: PAZOPANIB HYDROCHLORIDE
     Indication: RENAL CANCER
     Dosage: 800 MG
     Route: 048
     Dates: start: 20190910, end: 20190925

REACTIONS (3)
  - Hypertension [Recovering/Resolving]
  - Back pain [Unknown]
  - Aortic dissection [Recovered/Resolved]

NARRATIVE: CASE EVENT DATE: 20190920
